FAERS Safety Report 6060987-0 (Version None)
Quarter: 2009Q1

REPORT INFORMATION
  Report Type: 
  Country: None (occurrence: None)
  Receive Date: 20090202
  Receipt Date: 20090121
  Transmission Date: 20090719
  Serious: Yes (Death)
  Sender: FDA-Public Use
  Company Number: US-JNJFOC-20090106698

PATIENT
  Sex: Female
  Weight: 88.91 kg

DRUGS (8)
  1. DURAGESIC-100 [Suspect]
     Indication: PAIN MANAGEMENT
     Route: 062
  2. PAROXETINE HCL [Suspect]
     Indication: DRUG USE FOR UNKNOWN INDICATION
  3. OXYCODONE [Suspect]
     Indication: DRUG USE FOR UNKNOWN INDICATION
  4. CYCLOBENZOPRINE [Suspect]
     Indication: DRUG USE FOR UNKNOWN INDICATION
  5. PROMETHAZINE [Concomitant]
  6. COUMADIN [Concomitant]
  7. DICYCLOMINE HYDROCHLORIDE [Concomitant]
  8. TRAZODONE HCL [Concomitant]

REACTIONS (1)
  - DRUG TOXICITY [None]
